FAERS Safety Report 10709404 (Version 1)
Quarter: 2015Q1

REPORT INFORMATION
  Report Type: Spontaneous
  Country: GB (occurrence: GB)
  Receive Date: 20150114
  Receipt Date: 20150114
  Transmission Date: 20150721
  Serious: Yes (Other)
  Sender: FDA-Public Use
  Company Number: GB-AUROBINDO-AUR-APL-2015-00140

PATIENT
  Age: 63 Year
  Sex: Female
  Weight: 68 kg

DRUGS (2)
  1. INDAPAMIDE. [Suspect]
     Active Substance: INDAPAMIDE
     Indication: PRODUCT USED FOR UNKNOWN INDICATION
     Dosage: UNK
     Route: 065
  2. RAMIPRIL 10MG [Suspect]
     Active Substance: RAMIPRIL
     Indication: DIASTOLIC HYPERTENSION
     Dosage: 10 MG, UNK
     Route: 048
     Dates: start: 20140202

REACTIONS (1)
  - Alopecia [Not Recovered/Not Resolved]

NARRATIVE: CASE EVENT DATE: 20140405
